FAERS Safety Report 15362134 (Version 1)
Quarter: 2018Q3

REPORT INFORMATION
  Report Type: Spontaneous
  Country: US (occurrence: US)
  Receive Date: 20180831
  Receipt Date: 20180831
  Transmission Date: 20181010
  Serious: Yes (Other)
  Sender: FDA-Public Use
  Company Number: None

PATIENT
  Age: 71 Year
  Sex: Female
  Weight: 62.6 kg

DRUGS (2)
  1. RANITIDINE 150MG GENERIC FOR ZANTAC [Suspect]
     Active Substance: RANITIDINE HYDROCHLORIDE
     Indication: GASTROOESOPHAGEAL REFLUX DISEASE
     Dosage: ?          QUANTITY:1 DF DOSAGE FORM;?
     Route: 048
     Dates: start: 20180813, end: 20180813
  2. OMNIPRAZOLE [Concomitant]

REACTIONS (9)
  - Dizziness [None]
  - Abdominal distension [None]
  - Pharyngeal oedema [None]
  - Dry mouth [None]
  - Product expiration date issue [None]
  - Dysphagia [None]
  - Asthenia [None]
  - Dyspnoea [None]
  - Nervousness [None]

NARRATIVE: CASE EVENT DATE: 20180820
